FAERS Safety Report 5621662-7 (Version None)
Quarter: 2008Q1

REPORT INFORMATION
  Report Type: 
  Country: None (occurrence: None)
  Receive Date: 20080206
  Receipt Date: 20080128
  Transmission Date: 20080703
  Serious: Yes (Death, Hospitalization)
  Sender: FDA-Public Use
  Company Number: 2008-00281

PATIENT
  Age: 57 Year
  Sex: Male

DRUGS (3)
  1. VELCADE [Suspect]
     Indication: MULTIPLE MYELOMA
     Dosage: INTRAVENOUS
     Route: 042
     Dates: start: 20071001, end: 20080108
  2. DOXIL [Concomitant]
  3. ZOMETA [Concomitant]

REACTIONS (1)
  - DISEASE PROGRESSION [None]
